FAERS Safety Report 8219598-0 (Version None)
Quarter: 2012Q1

REPORT INFORMATION
  Report Type: 
  Country: None (occurrence: None)
  Receive Date: 20120319
  Receipt Date: 20120315
  Transmission Date: 20120608
  Serious: Yes (Other)
  Sender: FDA-Public Use
  Company Number: AU-PFIZER INC-2012044045

PATIENT
  Age: 87 Year
  Sex: Male

DRUGS (5)
  1. TEMAZEPAM [Concomitant]
     Indication: INSOMNIA
     Dosage: 10 MG, 1X/DAY
     Route: 048
  2. CARDIPRIN [Concomitant]
     Indication: PROPHYLAXIS
  3. PROCHLORPERAZINE [Suspect]
     Indication: DIZZINESS
     Dosage: 5MG EVERY SIX HOURS
     Route: 048
     Dates: start: 20070101
  4. EFFEXOR XR [Suspect]
     Indication: DEPRESSION
     Dosage: 37.5 MG, 1X/DAY
     Route: 048
     Dates: start: 20070101
  5. FEXOFENADINE HCL [Concomitant]
     Indication: HYPERSENSITIVITY

REACTIONS (4)
  - DISSOCIATION [None]
  - SEROTONIN SYNDROME [None]
  - LOSS OF CONSCIOUSNESS [None]
  - DIZZINESS [None]
